FAERS Safety Report 4760415-9 (Version None)
Quarter: 2005Q3

REPORT INFORMATION
  Report Type: 
  Country: None (occurrence: None)
  Receive Date: 20050902
  Receipt Date: 20050825
  Transmission Date: 20060218
  Serious: Yes (Life-Threatening)
  Sender: FDA-Public Use
  Company Number: NL-BRISTOL-MYERS SQUIBB COMPANY-13090873

PATIENT
  Age: 70 Year
  Sex: Female

DRUGS (4)
  1. CAPTOPRIL [Suspect]
     Indication: HYPERTENSION
     Dates: start: 19950101
  2. METOPROLOL TARTRATE [Concomitant]
     Dates: start: 20000101
  3. FUROSEMIDE [Concomitant]
     Dates: start: 19960101
  4. SEROXAT [Concomitant]

REACTIONS (1)
  - CHRONIC MYELOID LEUKAEMIA [None]
